FAERS Safety Report 4981890-0 (Version None)
Quarter: 2006Q2

REPORT INFORMATION
  Report Type: 
  Country: None (occurrence: None)
  Receive Date: 20060424
  Receipt Date: 20060424
  Transmission Date: 20061013
  Serious: Yes (Hospitalization)
  Sender: FDA-Public Use
  Company Number: None

PATIENT
  Age: 70 Year
  Sex: Male
  Weight: 89 kg

DRUGS (3)
  1. WARFARIN SODIUM [Suspect]
     Indication: ATRIAL FIBRILLATION
     Dosage: 2 MG PO QDAY EXCEPT 1 MG ON MON
     Route: 048
  2. LOPRESSOR [Concomitant]
  3. VITAMIN B-12 [Concomitant]

REACTIONS (4)
  - COAGULOPATHY [None]
  - HAEMATURIA [None]
  - HAEMODIALYSIS [None]
  - RENAL FAILURE ACUTE [None]
